FAERS Safety Report 8122290-4 (Version None)
Quarter: 2012Q1

REPORT INFORMATION
  Report Type: 
  Country: None (occurrence: None)
  Receive Date: 20120208
  Receipt Date: 20120203
  Transmission Date: 20120608
  Serious: Yes (Death, Hospitalization, Other)
  Sender: FDA-Public Use
  Company Number: FR-ELI_LILLY_AND_COMPANY-FR201202001121

PATIENT
  Sex: Male

DRUGS (8)
  1. EMEND [Concomitant]
     Dosage: 125 MG, UNK
     Route: 048
     Dates: start: 20110621, end: 20110824
  2. ONDANSETRON [Concomitant]
     Dosage: 8 MG, UNK
     Route: 042
     Dates: start: 20110621, end: 20110824
  3. METHYLPREDNISOLONE [Concomitant]
     Dosage: 120 MG, UNK
     Route: 042
     Dates: end: 20110824
  4. ALIMTA [Suspect]
     Indication: LUNG ADENOCARCINOMA METASTATIC
     Dosage: 1000 MG, EVERY 3 WEEKS
     Route: 042
     Dates: start: 20110621, end: 20110824
  5. CISPLATIN [Concomitant]
     Indication: LUNG ADENOCARCINOMA METASTATIC
     Dosage: 150 MG, EVERY 3 WEEKS
     Route: 042
     Dates: start: 20010621, end: 20110824
  6. ZOFRAN [Concomitant]
     Dosage: 40 MG, UNK
     Route: 048
     Dates: start: 20110621
  7. ZOFRAN [Concomitant]
     Dosage: 16 MG, UNK
     Route: 048
     Dates: end: 20110824
  8. METHYLPREDNISOLONE [Concomitant]
     Dosage: 80 MG, UNK
     Route: 042
     Dates: start: 20110621

REACTIONS (7)
  - ISCHAEMIC STROKE [None]
  - THROMBOCYTOPENIA [None]
  - NEOPLASM PROGRESSION [None]
  - ANAEMIA [None]
  - MONOPARESIS [None]
  - ISCHAEMIA [None]
  - DISSEMINATED INTRAVASCULAR COAGULATION [None]
